FAERS Safety Report 6998553-2 (Version None)
Quarter: 2010Q3

REPORT INFORMATION
  Report Type: 
  Country: None (occurrence: None)
  Receive Date: 20100920
  Receipt Date: 20070508
  Transmission Date: 20110219
  Serious: Yes (Other)
  Sender: FDA-Public Use
  Company Number: US-ASTRAZENECA-2006UW27483

PATIENT
  Age: 39 Year
  Sex: Male
  Weight: 113.4 kg

DRUGS (11)
  1. SEROQUEL [Suspect]
     Indication: MENTAL DISORDER
     Route: 048
     Dates: start: 19970101
  2. SEROQUEL [Suspect]
     Route: 048
     Dates: start: 20060101
  3. GEODON [Concomitant]
  4. RISPERDAL [Concomitant]
     Route: 048
     Dates: start: 20060307
  5. ZOLOFT [Concomitant]
     Route: 048
     Dates: start: 20060307
  6. WELLBUTRIN [Concomitant]
     Route: 048
     Dates: start: 20060307
  7. METFORMIN [Concomitant]
     Route: 048
  8. ASPIRIN [Concomitant]
     Route: 048
  9. LIPITOR [Concomitant]
     Route: 048
     Dates: start: 20071212
  10. LEXAPRO [Concomitant]
     Dosage: 10-20 MG FLUCTUATING
     Dates: start: 20071212
  11. ZYPREXA [Concomitant]

REACTIONS (8)
  - BLOOD CHOLESTEROL INCREASED [None]
  - BLOOD TRIGLYCERIDES INCREASED [None]
  - DIABETES MELLITUS [None]
  - NASAL CONGESTION [None]
  - OBESITY [None]
  - PANCREATITIS [None]
  - TYPE 2 DIABETES MELLITUS [None]
  - WEIGHT INCREASED [None]
